FAERS Safety Report 9591559 (Version 1)
Quarter: 2013Q4

REPORT INFORMATION
  Report Type: Spontaneous
  Country: US (occurrence: US)
  Receive Date: 20131003
  Receipt Date: 20131003
  Transmission Date: 20140711
  Serious: No
  Sender: FDA-Public Use
  Company Number: US-AMGEN-USASP2012082561

PATIENT
  Age: 49 Year
  Sex: Female
  Weight: 81.63 kg

DRUGS (17)
  1. ENBREL [Suspect]
     Indication: PRODUCT USED FOR UNKNOWN INDICATION
     Dosage: 50 MG, QWK
  2. SINGULAIR [Concomitant]
     Dosage: 10 MG, UNK
  3. MAXALT                             /01406501/ [Concomitant]
     Dosage: 10 MG, UNK
  4. MELOXICAM [Concomitant]
     Dosage: 15 MG, UNK
  5. VICODIN [Concomitant]
     Dosage: 5-300MG
  6. ALBUTEROL                          /00139501/ [Concomitant]
     Dosage: 90 MUG, UNK
  7. METANX [Concomitant]
     Dosage: UNK
  8. PREDNISONE [Concomitant]
     Dosage: 5 MG, UNK
  9. METHOTREXATE [Concomitant]
     Dosage: 100/4ML
  10. FISH OIL [Concomitant]
     Dosage: 1200 MG, UNK
  11. VITAMIN D                          /00107901/ [Concomitant]
     Dosage: 400 UNIT
  12. PROAIR HFA [Concomitant]
     Dosage: UNK
  13. PROBIOTIC                          /06395501/ [Concomitant]
     Dosage: UNK
  14. FOLIC ACID [Concomitant]
     Dosage: 20 MG, UNK
  15. MULTIVITAMINS, PLAIN [Concomitant]
     Dosage: UNK
  16. VITAMIN C                          /00008001/ [Concomitant]
     Dosage: 500 MG, UNK
  17. CALCIUM [Concomitant]
     Dosage: 500 TAB

REACTIONS (1)
  - Vision blurred [Unknown]
